FAERS Safety Report 13099704 (Version 1)
Quarter: 2017Q1

REPORT INFORMATION
  Report Type: Report from Study
  Country: None (occurrence: DE)
  Receive Date: 20170110
  Receipt Date: 20170110
  Transmission Date: 20170428
  Serious: Yes (Hospitalization)
  Sender: FDA-Public Use
  Company Number: DE-ABBVIE-17K-062-1832480-00

PATIENT
  Age: 32 Year
  Sex: Female

DRUGS (2)
  1. HUMIRA [Suspect]
     Active Substance: ADALIMUMAB
     Indication: CROHN^S DISEASE
     Dosage: DISCONTINUED IN BEGINNING OF OCT 2016
     Route: 058
     Dates: start: 20150107, end: 201610
  2. HUMIRA [Suspect]
     Active Substance: ADALIMUMAB
     Dosage: RESTARTED IN MID OF OCT-2016
     Route: 058
     Dates: start: 201610

REACTIONS (4)
  - Nephrolithiasis [Recovered/Resolved]
  - Ovarian cyst [Recovered/Resolved]
  - Chills [Recovered/Resolved]
  - Gastrointestinal inflammation [Recovered/Resolved]

NARRATIVE: CASE EVENT DATE: 20161003
